FAERS Safety Report 9331298 (Version 1)
Quarter: 2013Q2

REPORT INFORMATION
  Report Type: Spontaneous
  Country: JP (occurrence: JP)
  Receive Date: 20130605
  Receipt Date: 20130605
  Transmission Date: 20140414
  Serious: Yes (Hospitalization)
  Sender: FDA-Public Use
  Company Number: JP-PFIZER INC-2013162227

PATIENT
  Age: 80 Year
  Sex: Male

DRUGS (1)
  1. CORTRIL [Suspect]
     Indication: ADRENAL INSUFFICIENCY
     Dosage: 25 MG/DAY
     Route: 048

REACTIONS (2)
  - General physical health deterioration [Unknown]
  - Dysphagia [Unknown]
